FAERS Safety Report 7078974-2 (Version None)
Quarter: 2010Q4

REPORT INFORMATION
  Report Type: 
  Country: None (occurrence: None)
  Receive Date: 20101102
  Receipt Date: 20101021
  Transmission Date: 20110411
  Serious: Yes (Hospitalization, Other)
  Sender: FDA-Public Use
  Company Number: US-ELI_LILLY_AND_COMPANY-US201009005815

PATIENT
  Age: 61 Year
  Sex: Male
  Weight: 92.971 kg

DRUGS (3)
  1. EFFIENT [Suspect]
     Indication: THROMBOSIS PROPHYLAXIS
  2. ASPIRIN [Concomitant]
  3. NEXIUM [Concomitant]

REACTIONS (1)
  - THROMBOSIS IN DEVICE [None]
